FAERS Safety Report 5678413-X (Version None)
Quarter: 2008Q1

REPORT INFORMATION
  Report Type: 
  Country: None (occurrence: None)
  Receive Date: 20080320
  Receipt Date: 20080313
  Transmission Date: 20080703
  Serious: Yes (Other)
  Sender: FDA-Public Use
  Company Number: 025238

PATIENT
  Age: 34 Year
  Sex: Male

DRUGS (3)
  1. METHYLPREDNISOLONE [Suspect]
     Indication: MULTIPLE SCLEROSIS
     Dosage: 1 G, INTRAVENOUS; 1 G, MONTHLY, INTRAVENOUS
     Route: 042
  2. METHYLPREDNISOLONE [Suspect]
     Indication: MULTIPLE SCLEROSIS
     Dosage: 1 G, INTRAVENOUS; 1 G, MONTHLY, INTRAVENOUS
     Route: 042
  3. COPAXONE [Concomitant]

REACTIONS (1)
  - HEPATIC NECROSIS [None]
